FAERS Safety Report 10032207 (Version 1)
Quarter: 2014Q1

REPORT INFORMATION
  Report Type: Spontaneous
  Country: US (occurrence: US)
  Receive Date: 20140324
  Receipt Date: 20140324
  Transmission Date: 20141002
  Serious: Yes (Hospitalization)
  Sender: FDA-Public Use
  Company Number: US-B.I. PHARMACEUTICALS,INC./RIDGEFIELD-2014-BI-12010BP

PATIENT
  Age: 69 Year
  Sex: Female

DRUGS (12)
  1. PRADAXA [Suspect]
     Indication: ATRIAL FIBRILLATION
     Dosage: 300 MG
     Route: 048
     Dates: start: 201108
  2. ASPIRIN [Concomitant]
     Dosage: STRENGTH: 1 TABLET; DAILY DOSE: 1 TABLET
     Route: 048
  3. ATENOLOL [Concomitant]
     Indication: ATRIAL FIBRILLATION
     Dosage: 200 MG
     Route: 048
  4. FIORINAL [Concomitant]
     Indication: MIGRAINE
     Route: 048
  5. ZYRTEC [Concomitant]
     Indication: HYPERSENSITIVITY
     Dosage: STRENGTH: 1 TABLET; DAILY DOSE: 2 TABLETS
     Route: 048
  6. CODEINE SULFATE [Concomitant]
     Indication: MIGRAINE
     Route: 048
  7. ZETIA [Concomitant]
     Indication: BLOOD CHOLESTEROL INCREASED
     Dosage: 10 MG
     Route: 048
  8. FLONASE [Concomitant]
     Dosage: FORMULATION:NASAL SPRAY;STRENGTH: 2 SPRAYS; DAILY DOSE: 4 SPRAYS
     Route: 045
  9. LEVSIN [Concomitant]
     Indication: INCONTINENCE
     Dosage: STRENGTH: 1 TABLET; DAILY DOSE: 2 TABLETS
     Route: 048
  10. HUMULIN INSULIN [Concomitant]
     Indication: DIABETES MELLITUS
     Dosage: FORMULATION: SUBCUTANEOUS; DAILY DOSE: 24 UNITS
     Route: 058
  11. MIRALAX [Concomitant]
     Indication: ABDOMINAL DISCOMFORT
     Dosage: 17 G
     Route: 048
  12. ARTIFICIAL TEARS [Concomitant]
     Indication: DRY EYE
     Route: 065

REACTIONS (6)
  - Fall [Recovered/Resolved]
  - Blood glucose decreased [Recovered/Resolved]
  - Fall [Recovered/Resolved]
  - Blood glucose decreased [Recovered/Resolved]
  - Atrial fibrillation [Not Recovered/Not Resolved]
  - Dyspnoea [Not Recovered/Not Resolved]
